FAERS Safety Report 8486639-5 (Version None)
Quarter: 2012Q3

REPORT INFORMATION
  Report Type: 
  Country: None (occurrence: None)
  Receive Date: 20120703
  Receipt Date: 20120627
  Transmission Date: 20120928
  Serious: Yes (Hospitalization)
  Sender: FDA-Public Use
  Company Number: PHHY2012GB055166

PATIENT
  Age: 62 Year
  Sex: Male

DRUGS (1)
  1. ALLOPURINOL [Suspect]
     Indication: GOUT

REACTIONS (16)
  - TOXIC EPIDERMAL NECROLYSIS [None]
  - HEPATIC FUNCTION ABNORMAL [None]
  - CONJUNCTIVITIS [None]
  - RASH VESICULAR [None]
  - ORAL MUCOSA EROSION [None]
  - MACULE [None]
  - ORAL MUCOSAL BLISTERING [None]
  - SKIN LESION [None]
  - TACHYCARDIA [None]
  - MYALGIA [None]
  - RENAL IMPAIRMENT [None]
  - BLISTER [None]
  - MALAISE [None]
  - COMPARTMENT SYNDROME [None]
  - PYREXIA [None]
  - SKIN EXFOLIATION [None]
